FAERS Safety Report 11720895 (Version 1)
Quarter: 2015Q4

REPORT INFORMATION
  Report Type: Spontaneous
  Country: US (occurrence: US)
  Receive Date: 20151110
  Receipt Date: 20151110
  Transmission Date: 20160304
  Serious: No
  Sender: FDA-Public Use
  Company Number: US-SA-2015SA133273

PATIENT
  Sex: Female

DRUGS (1)
  1. PRALUENT [Suspect]
     Active Substance: ALIROCUMAB
     Route: 065
     Dates: start: 20150820

REACTIONS (1)
  - Muscle spasms [Unknown]

NARRATIVE: CASE EVENT DATE: 20150820
